FAERS Safety Report 12013002 (Version 5)
Quarter: 2016Q3

REPORT INFORMATION
  Report Type: Report from Study
  Country: GR (occurrence: GR)
  Receive Date: 20160205
  Receipt Date: 20160805
  Transmission Date: 20161109
  Serious: Yes (Hospitalization)
  Sender: FDA-Public Use
  Company Number: GR-SA-2016SA017692

PATIENT
  Age: 39 Year
  Sex: Female

DRUGS (29)
  1. LAMOTRIX [Concomitant]
     Active Substance: LAMOTRIGINE
     Indication: DRUG THERAPY
     Route: 048
     Dates: start: 2010
  2. FENISTIL [Concomitant]
     Active Substance: DIMETHINDENE
     Indication: PROPHYLAXIS
     Route: 042
     Dates: start: 20160118, end: 20160121
  3. MIOREL [Concomitant]
     Active Substance: THIOCOLCHICOSIDE
     Indication: DRUG THERAPY
     Route: 048
     Dates: start: 2008
  4. XATRAL [Concomitant]
     Active Substance: ALFUZOSIN
     Indication: DRUG THERAPY
     Route: 048
     Dates: start: 2014
  5. APOTEL [Concomitant]
     Active Substance: ACETAMINOPHEN
     Indication: PROPHYLAXIS
     Route: 042
     Dates: start: 20160124, end: 20160125
  6. LEMTRADA [Suspect]
     Active Substance: ALEMTUZUMAB
     Indication: MULTIPLE SCLEROSIS RELAPSE
     Route: 042
     Dates: start: 20160118, end: 20160120
  7. XATRAL [Concomitant]
     Active Substance: ALFUZOSIN
     Indication: BLADDER DYSFUNCTION
     Route: 048
     Dates: start: 2014
  8. PERONTEN [Concomitant]
     Indication: PSYCHOTIC DISORDER
     Route: 048
     Dates: start: 201111
  9. SOLU-MEDROL [Concomitant]
     Active Substance: METHYLPREDNISOLONE SODIUM SUCCINATE
     Indication: PROPHYLAXIS
     Route: 042
     Dates: start: 20160122, end: 20160122
  10. APOTEL [Concomitant]
     Active Substance: ACETAMINOPHEN
     Indication: PROPHYLAXIS
     Route: 042
     Dates: start: 20160118, end: 20160121
  11. LUMAREN [Concomitant]
     Indication: PROPHYLAXIS
     Route: 048
     Dates: start: 20160114
  12. MIOREL [Concomitant]
     Active Substance: THIOCOLCHICOSIDE
     Indication: BLADDER DYSFUNCTION
     Route: 048
     Dates: start: 2008
  13. XANAX [Concomitant]
     Active Substance: ALPRAZOLAM
     Indication: PSYCHOTIC DISORDER
     Route: 048
     Dates: start: 201511
  14. BESPAR [Concomitant]
     Active Substance: BUSPIRONE HYDROCHLORIDE
     Indication: DRUG THERAPY
     Route: 048
     Dates: start: 2010
  15. SEROQUEL [Concomitant]
     Active Substance: QUETIAPINE FUMARATE
     Indication: DRUG THERAPY
     Route: 048
     Dates: start: 2010
  16. ESCITALOPRAM [Concomitant]
     Active Substance: ESCITALOPRAM OXALATE
     Indication: PSYCHOTIC DISORDER
     Route: 048
     Dates: start: 201509
  17. LORDIN [Concomitant]
     Active Substance: OMEPRAZOLE
     Indication: PROPHYLAXIS
     Route: 042
     Dates: start: 20160118, end: 20160121
  18. LEMTRADA [Suspect]
     Active Substance: ALEMTUZUMAB
     Indication: MULTIPLE SCLEROSIS RELAPSE
     Route: 042
     Dates: start: 20160121, end: 20160121
  19. ESCITALOPRAM [Concomitant]
     Active Substance: ESCITALOPRAM OXALATE
     Indication: DRUG THERAPY
     Route: 048
     Dates: start: 201509
  20. XANAX [Concomitant]
     Active Substance: ALPRAZOLAM
     Indication: DRUG THERAPY
     Route: 048
     Dates: start: 201511
  21. ZOFRON [Concomitant]
     Active Substance: ONDANSETRON
     Indication: PROPHYLAXIS
     Route: 042
     Dates: start: 20160118, end: 20160121
  22. ZIRTEK [Concomitant]
     Active Substance: CETIRIZINE HYDROCHLORIDE
     Indication: PROPHYLAXIS
     Route: 048
     Dates: start: 20160114
  23. SEROQUEL [Concomitant]
     Active Substance: QUETIAPINE FUMARATE
     Indication: PSYCHOTIC DISORDER
     Route: 048
     Dates: start: 2010
  24. VALTREX [Concomitant]
     Active Substance: VALACYCLOVIR HYDROCHLORIDE
     Indication: PROPHYLAXIS
     Route: 048
     Dates: start: 20160118
  25. SOLU-MEDROL [Concomitant]
     Active Substance: METHYLPREDNISOLONE SODIUM SUCCINATE
     Indication: PROPHYLAXIS
     Route: 042
     Dates: start: 20160118, end: 20160121
  26. BESPAR [Concomitant]
     Active Substance: BUSPIRONE HYDROCHLORIDE
     Indication: PSYCHOTIC DISORDER
     Route: 048
     Dates: start: 2010
  27. LAMOTRIX [Concomitant]
     Active Substance: LAMOTRIGINE
     Indication: PSYCHOTIC DISORDER
     Route: 048
     Dates: start: 2010
  28. PERONTEN [Concomitant]
     Indication: DRUG THERAPY
     Route: 048
     Dates: start: 201111
  29. FOSFOCIN [Concomitant]
     Indication: URINARY TRACT INFECTION
     Dosage: 3GR OD ONCE A WEEK
     Route: 048
     Dates: start: 201402

REACTIONS (7)
  - Bradycardia [Recovered/Resolved]
  - Bradycardia [Recovered/Resolved]
  - Leukocytosis [Recovered/Resolved]
  - Pyrexia [Recovered/Resolved]
  - Stomatitis [Recovered/Resolved]
  - Pyrexia [Recovered/Resolved]
  - C-reactive protein increased [Recovered/Resolved]

NARRATIVE: CASE EVENT DATE: 20160118
